FAERS Safety Report 18207436 (Version 1)
Quarter: 2020Q3

REPORT INFORMATION
  Report Type: Report from Study
  Country: GB (occurrence: GB)
  Receive Date: 20200828
  Receipt Date: 20200828
  Transmission Date: 20201103
  Serious: Yes (Hospitalization, Other)
  Sender: FDA-Public Use
  Company Number: GB-BRISTOL-MYERS SQUIBB COMPANY-BMS-2020-066447

PATIENT
  Age: 61 Year
  Sex: Female
  Weight: 83.5 kg

DRUGS (9)
  1. IPILIMUMAB [Suspect]
     Active Substance: IPILIMUMAB
     Indication: GLIOBLASTOMA
     Dosage: 245 MG EVERY 3 WEEKS FOR 4 DOSES
     Route: 042
     Dates: start: 20190218, end: 20190422
  2. SERTRALINE [Concomitant]
     Active Substance: SERTRALINE HYDROCHLORIDE
     Indication: DEPRESSION
     Dosage: 100 MILLIGRAM, QD
     Route: 048
     Dates: start: 20090701
  3. FEXOFENADINE [Concomitant]
     Active Substance: FEXOFENADINE HYDROCHLORIDE
     Indication: PROPHYLAXIS
     Dosage: 180 MILLIGRAM, QD
     Route: 048
     Dates: start: 20050701
  4. LANSOPRAZOLE. [Concomitant]
     Active Substance: LANSOPRAZOLE
     Indication: DYSPEPSIA
     Dosage: 15 MILLIGRAM, BID
     Route: 065
     Dates: start: 20190724
  5. PIRITON [Concomitant]
     Active Substance: CHLORPHENIRAMINE MALEATE
     Indication: PRURITUS
     Dosage: 4 MILLIGRAM, PRN
     Route: 065
     Dates: start: 20191201
  6. PARACETAMOL [Concomitant]
     Active Substance: ACETAMINOPHEN
     Indication: HEADACHE
     Dosage: 1 GRAM, QDS, PRN
     Route: 048
     Dates: start: 201811
  7. METOCLOPRAMIDE. [Concomitant]
     Active Substance: METOCLOPRAMIDE
     Indication: NAUSEA
     Dosage: 10 MILLIGRAM, PRN
     Route: 048
     Dates: start: 20190411
  8. TEMOZOLOMIDE. [Suspect]
     Active Substance: TEMOZOLOMIDE
     Indication: GLIOBLASTOMA
     Dosage: 365 MG, DAILY FOR 5 DAYS IN  6 X 28 DAY CYCLE
     Route: 048
     Dates: start: 20190311, end: 20190729
  9. OMEPRAZOLE. [Concomitant]
     Active Substance: OMEPRAZOLE
     Indication: GASTROOESOPHAGEAL REFLUX DISEASE
     Dosage: 20 MILLIGRAM, QD
     Route: 048
     Dates: start: 20050701

REACTIONS (1)
  - Brain oedema [Recovered/Resolved with Sequelae]

NARRATIVE: CASE EVENT DATE: 20200807
